FAERS Safety Report 15012124 (Version 1)
Quarter: 2018Q2

REPORT INFORMATION
  Report Type: Spontaneous
  Country: IT (occurrence: IT)
  Receive Date: 20180614
  Receipt Date: 20180614
  Transmission Date: 20180711
  Serious: Yes (Hospitalization, Other)
  Sender: FDA-Public Use
  Company Number: IT-MYLANLABS-2018M1039081

PATIENT
  Age: 40 Day
  Sex: Female
  Weight: 3 kg

DRUGS (1)
  1. CARBAMAZEPINE. [Suspect]
     Active Substance: CARBAMAZEPINE
     Indication: PRODUCT USED FOR UNKNOWN INDICATION
     Dosage: MOTHER WAS INITIALLY ON 800MG/DAY DIVIDED INTO 2 DOSES SINCE CONCEPTION.  DOSE WAS INCREASED TO 1200
     Route: 063

REACTIONS (4)
  - Exposure via breast milk [Unknown]
  - Regurgitation [Recovered/Resolved]
  - Vomiting [Recovered/Resolved]
  - Foetal exposure during pregnancy [Unknown]
